FAERS Safety Report 9695781 (Version 1)
Quarter: 2013Q4

REPORT INFORMATION
  Report Type: Spontaneous
  Country: US (occurrence: None)
  Receive Date: 20131118
  Receipt Date: 20131118
  Transmission Date: 20140711
  Serious: Yes (Other)
  Sender: FDA-Public Use
  Company Number: None

PATIENT
  Age: 69 Year
  Sex: Female

DRUGS (1)
  1. RISEDRONATE [Suspect]
     Indication: OSTEOPOROSIS
     Route: 048

REACTIONS (3)
  - Rash pruritic [None]
  - Dysgeusia [None]
  - Parosmia [None]
